FAERS Safety Report 14004692 (Version 2)
Quarter: 2018Q1

REPORT INFORMATION
  Report Type: Report from Study
  Country: US (occurrence: US)
  Receive Date: 20170922
  Receipt Date: 20180319
  Transmission Date: 20180508
  Serious: Yes (Other)
  Sender: FDA-Public Use
  Company Number: US-JNJFOC-20161202467

PATIENT
  Sex: Male

DRUGS (28)
  1. LOPRESSOR [Concomitant]
     Active Substance: METOPROLOL TARTRATE
  2. HYDROMORPHONE [Concomitant]
     Active Substance: HYDROMORPHONE
  3. ROCEPHIN [Concomitant]
     Active Substance: CEFTRIAXONE SODIUM
  4. ATARAX [Concomitant]
     Active Substance: HYDROXYZINE HYDROCHLORIDE
  5. IMBRUVICA [Suspect]
     Active Substance: IBRUTINIB
     Indication: NON-HODGKIN^S LYMPHOMA
     Route: 048
     Dates: start: 20161103
  6. IMBRUVICA [Suspect]
     Active Substance: IBRUTINIB
     Indication: NON-HODGKIN^S LYMPHOMA
     Route: 048
     Dates: start: 20161109
  7. TIMOLOL. [Concomitant]
     Active Substance: TIMOLOL
  8. GLUTOSE [Concomitant]
     Active Substance: DEXTROSE
  9. MILK OF MAGNESIA [Concomitant]
     Active Substance: MAGNESIUM HYDROXIDE
  10. METRONIDAZOL [Concomitant]
     Active Substance: METRONIDAZOLE
  11. PROTONIX [Concomitant]
     Active Substance: PANTOPRAZOLE SODIUM
  12. ZOFRAN [Concomitant]
     Active Substance: ONDANSETRON HYDROCHLORIDE
  13. NICOTINE. [Concomitant]
     Active Substance: NICOTINE
  14. IMBRUVICA [Suspect]
     Active Substance: IBRUTINIB
     Indication: CHRONIC LYMPHOCYTIC LEUKAEMIA
     Route: 048
     Dates: start: 20161103
  15. XANAX [Concomitant]
     Active Substance: ALPRAZOLAM
  16. LATANOPROST. [Concomitant]
     Active Substance: LATANOPROST
  17. LISINOPRIL. [Concomitant]
     Active Substance: LISINOPRIL
  18. ASPIRIN. [Concomitant]
     Active Substance: ASPIRIN
  19. TYLENOL [Concomitant]
     Active Substance: ACETAMINOPHEN
  20. SODIUM CHLORIDE. [Concomitant]
     Active Substance: SODIUM CHLORIDE
  21. LOVENOX [Concomitant]
     Active Substance: ENOXAPARIN SODIUM
  22. METFORMIN [Concomitant]
     Active Substance: METFORMIN HYDROCHLORIDE
  23. BRIMONIDINE [Concomitant]
     Active Substance: BRIMONIDINE TARTRATE
  24. ATIVAN [Concomitant]
     Active Substance: LORAZEPAM
  25. HUMALOG [Concomitant]
     Active Substance: INSULIN LISPRO
  26. ATORVASTATIN [Concomitant]
     Active Substance: ATORVASTATIN
  27. IMBRUVICA [Suspect]
     Active Substance: IBRUTINIB
     Indication: CHRONIC LYMPHOCYTIC LEUKAEMIA
     Route: 048
     Dates: start: 20161109
  28. ZOCOR [Concomitant]
     Active Substance: SIMVASTATIN

REACTIONS (18)
  - Nightmare [Unknown]
  - Dyspnoea [Unknown]
  - Dizziness [Unknown]
  - Dry throat [Unknown]
  - Decreased interest [Unknown]
  - Abdominal pain [Unknown]
  - Fatigue [Unknown]
  - Suicidal ideation [Unknown]
  - Diarrhoea [Recovered/Resolved]
  - Pain [Unknown]
  - Affective disorder [Unknown]
  - Nervousness [Unknown]
  - Muscular weakness [Unknown]
  - Decreased appetite [Unknown]
  - Musculoskeletal pain [Unknown]
  - Pain in extremity [Unknown]
  - Asthenia [Not Recovered/Not Resolved]
  - Feeling jittery [Unknown]

NARRATIVE: CASE EVENT DATE: 2016
